FAERS Safety Report 14012566 (Version 1)
Quarter: 2017Q3

REPORT INFORMATION
  Report Type: Report from Study
  Country: US (occurrence: US)
  Receive Date: 20170926
  Receipt Date: 20170926
  Transmission Date: 20171128
  Serious: Yes (Other)
  Sender: FDA-Public Use
  Company Number: US-GILEAD-2017-0295082

PATIENT
  Age: 74 Year
  Sex: Female

DRUGS (1)
  1. RANOLAZINE. [Suspect]
     Active Substance: RANOLAZINE
     Indication: PRODUCT USED FOR UNKNOWN INDICATION
     Dosage: 500 MG, UNK
     Route: 048
     Dates: start: 20160318, end: 201604

REACTIONS (11)
  - Diabetes mellitus [Not Recovered/Not Resolved]
  - Memory impairment [Not Recovered/Not Resolved]
  - Fall [Not Recovered/Not Resolved]
  - Cardiac operation [Recovered/Resolved]
  - Transient ischaemic attack [Unknown]
  - Fear [Not Recovered/Not Resolved]
  - Exercise lack of [Not Recovered/Not Resolved]
  - Wrong technique in product usage process [Recovered/Resolved]
  - Feeling abnormal [Not Recovered/Not Resolved]
  - Intentional product misuse [Recovered/Resolved]
  - Poor peripheral circulation [Not Recovered/Not Resolved]
